FAERS Safety Report 11150900 (Version 1)
Quarter: 2015Q2

REPORT INFORMATION
  Report Type: Spontaneous
  Country: US (occurrence: None)
  Receive Date: 20150528
  Receipt Date: 20150528
  Transmission Date: 20150821
  Serious: Yes (Life-Threatening, Other)
  Sender: FDA-Public Use
  Company Number: US2015068425

PATIENT
  Age: 45 Year
  Sex: Male

DRUGS (1)
  1. TRIUMEQ [Suspect]
     Active Substance: ABACAVIR SULFATE\DOLUTEGRAVIR SODIUM\LAMIVUDINE
     Indication: HIV INFECTION

REACTIONS (9)
  - Abdominal pain [None]
  - Respiratory distress [None]
  - Oropharyngeal pain [None]
  - Headache [None]
  - Dyspnoea [None]
  - Chills [None]
  - Hyperhidrosis [None]
  - Malaise [None]
  - Drug hypersensitivity [None]

NARRATIVE: CASE EVENT DATE: 20150502
